FAERS Safety Report 10265857 (Version 1)
Quarter: 2014Q2

REPORT INFORMATION
  Report Type: Spontaneous
  Country: FR (occurrence: FR)
  Receive Date: 20140627
  Receipt Date: 20140627
  Transmission Date: 20141212
  Serious: Yes (Hospitalization)
  Sender: FDA-Public Use
  Company Number: FR-BAYER-2014-092919

PATIENT
  Age: 62 Year
  Sex: Male

DRUGS (11)
  1. CIFLOX [Suspect]
     Dosage: 400 MG, BID
     Route: 042
     Dates: start: 20140516, end: 20140521
  2. VANCOMYCIN [Suspect]
     Dosage: 1 G, BID
     Route: 042
     Dates: start: 20140424, end: 20140521
  3. SPASFON [Suspect]
     Dosage: UNK
     Route: 042
     Dates: start: 20140428, end: 20140521
  4. LOVENOX [Suspect]
     Dosage: UNK
     Route: 058
     Dates: start: 20140422, end: 20140521
  5. FLAGYL [Concomitant]
     Dosage: 1500 MG, TID
     Route: 042
     Dates: start: 20140423, end: 20140504
  6. TOPALGIC LP [Concomitant]
  7. LEXOMIL [Concomitant]
  8. INEXIUM [Concomitant]
     Dosage: 40 MG, QD
  9. MORPHINE [Concomitant]
  10. ACUPAN [Concomitant]
  11. DROLEPTAN [Concomitant]
     Dosage: UNK
     Dates: start: 20140518

REACTIONS (3)
  - Drug reaction with eosinophilia and systemic symptoms [Recovering/Resolving]
  - Rash [Recovering/Resolving]
  - Eosinophilia [Recovering/Resolving]
